FAERS Safety Report 15304339 (Version 1)
Quarter: 2018Q3

REPORT INFORMATION
  Report Type: Report from Study
  Country: US (occurrence: US)
  Receive Date: 20180821
  Receipt Date: 20180821
  Transmission Date: 20181010
  Serious: No
  Sender: FDA-Public Use
  Company Number: US-AMGEN INC.-USASP2018109568

PATIENT
  Age: 53 Year
  Sex: Female

DRUGS (13)
  1. NAMENDA [Concomitant]
     Active Substance: MEMANTINE HYDROCHLORIDE
     Indication: VESTIBULAR MIGRAINE
  2. DILAUDID [Concomitant]
     Active Substance: HYDROMORPHONE HYDROCHLORIDE
     Indication: MIGRAINE
     Dosage: UNK
  3. CAMBIA [Concomitant]
     Active Substance: DICLOFENAC POTASSIUM
     Indication: VESTIBULAR MIGRAINE
  4. AIMOVIG [Suspect]
     Active Substance: ERENUMAB-AOOE
     Indication: VESTIBULAR MIGRAINE
  5. MAXALT [Concomitant]
     Active Substance: RIZATRIPTAN BENZOATE
     Indication: MIGRAINE
     Dosage: UNK
  6. CAMBIA [Concomitant]
     Active Substance: DICLOFENAC POTASSIUM
     Indication: MIGRAINE
     Dosage: UNK
  7. NAMENDA [Concomitant]
     Active Substance: MEMANTINE HYDROCHLORIDE
     Indication: MIGRAINE
     Dosage: UNK
  8. MAXALT [Concomitant]
     Active Substance: RIZATRIPTAN BENZOATE
     Indication: VESTIBULAR MIGRAINE
  9. MOTRIN [Concomitant]
     Active Substance: IBUPROFEN
     Indication: MIGRAINE
     Dosage: UNK
  10. AIMOVIG [Suspect]
     Active Substance: ERENUMAB-AOOE
     Indication: MIGRAINE
     Dosage: 70 MG, QMO
     Route: 065
     Dates: start: 20180706
  11. DILAUDID [Concomitant]
     Active Substance: HYDROMORPHONE HYDROCHLORIDE
     Indication: VESTIBULAR MIGRAINE
  12. DILAUDID [Concomitant]
     Active Substance: HYDROMORPHONE HYDROCHLORIDE
     Indication: MIGRAINE
  13. MOTRIN [Concomitant]
     Active Substance: IBUPROFEN
     Indication: VESTIBULAR MIGRAINE

REACTIONS (3)
  - Therapeutic response shortened [Unknown]
  - Pruritus generalised [Not Recovered/Not Resolved]
  - Migraine [Unknown]

NARRATIVE: CASE EVENT DATE: 20180706
